FAERS Safety Report 6833510-8 (Version None)
Quarter: 2010Q3

REPORT INFORMATION
  Report Type: 
  Country: None (occurrence: None)
  Receive Date: 20100712
  Receipt Date: 20070326
  Transmission Date: 20110219
  Serious: No
  Sender: FDA-Public Use
  Company Number: US-PFIZER INC-2007025046

PATIENT
  Sex: Female

DRUGS (2)
  1. CHANTIX [Suspect]
  2. VICODIN [Interacting]

REACTIONS (4)
  - DISTURBANCE IN ATTENTION [None]
  - DRUG INTERACTION [None]
  - EUPHORIC MOOD [None]
  - INSOMNIA [None]
